FAERS Safety Report 24171018 (Version 2)
Quarter: 2024Q3

REPORT INFORMATION
  Report Type: Spontaneous
  Country: US (occurrence: US)
  Receive Date: 20240805
  Receipt Date: 20240826
  Transmission Date: 20241016
  Serious: No
  Sender: SANOFI AVENTIS
  Company Number: US-SA-SAC20240729000785

PATIENT
  Age: 82 Year
  Sex: Male
  Weight: 97.06 kg

DRUGS (2)
  1. DUPIXENT [Suspect]
     Active Substance: DUPILUMAB
     Indication: Chronic rhinosinusitis with nasal polyps
     Dosage: DOSE AND ROUTE PRESCRIBED - FREQUENCY-:300 MG (2 ML) UNDER THE SKIN EXPIRATION DATE- EVERY 2 WEEKS
     Route: 058
     Dates: start: 20240613
  2. DUPIXENT [Suspect]
     Active Substance: DUPILUMAB
     Indication: Polyp

REACTIONS (6)
  - Joint stiffness [Not Recovered/Not Resolved]
  - Muscular weakness [Not Recovered/Not Resolved]
  - Asthenia [Not Recovered/Not Resolved]
  - Musculoskeletal stiffness [Not Recovered/Not Resolved]
  - Condition aggravated [Not Recovered/Not Resolved]
  - Arthralgia [Not Recovered/Not Resolved]

NARRATIVE: CASE EVENT DATE: 20240101
